FAERS Safety Report 23677821 (Version 1)
Quarter: 2024Q1

REPORT INFORMATION
  Report Type: Spontaneous
  Country: GB (occurrence: GB)
  Receive Date: 20240327
  Receipt Date: 20240327
  Transmission Date: 20240410
  Serious: Yes (Other)
  Sender: FDA-Public Use
  Company Number: None

PATIENT
  Age: 85 Year
  Sex: Male
  Weight: 84 kg

DRUGS (15)
  1. AMLODIPINE [Suspect]
     Active Substance: AMLODIPINE BESYLATE
     Indication: Ill-defined disorder
     Dosage: UNK
     Route: 065
     Dates: start: 20240125
  2. AMIODARONE [Concomitant]
     Active Substance: AMIODARONE
     Indication: Ill-defined disorder
     Dosage: QD (TAKE HALF A TABLET DAILY)
     Route: 065
     Dates: start: 20230829
  3. AMLODIPINE [Concomitant]
     Active Substance: AMLODIPINE BESYLATE
     Indication: Ill-defined disorder
     Dosage: 1 DOSAGE FORM, QD (TAKE ONE DAILY)
     Route: 065
     Dates: start: 20240118, end: 20240215
  4. ASPIRIN [Concomitant]
     Active Substance: ASPIRIN
     Indication: Ill-defined disorder
     Dosage: 1 DOSAGE FORM, QD (TAKE ONE DAILY)
     Route: 065
     Dates: start: 20230829
  5. ATORVASTATIN [Concomitant]
     Active Substance: ATORVASTATIN
     Indication: Ill-defined disorder
     Dosage: 1 DOSAGE FORM, QD (TAKE ONE DAILY)
     Route: 065
     Dates: start: 20230829
  6. ISOSORBIDE MONONITRATE [Concomitant]
     Active Substance: ISOSORBIDE MONONITRATE
     Indication: Ill-defined disorder
     Dosage: 2 DOSAGE FORM, QD (2 DAILY)
     Route: 065
     Dates: start: 20231129
  7. DICLOFENAC SODIUM [Concomitant]
     Active Substance: DICLOFENAC\DICLOFENAC SODIUM
     Indication: Ill-defined disorder
     Dosage: BID (APPLY TWICE DAILY)
     Route: 065
     Dates: start: 20230829, end: 20240118
  8. ERYTHROMYCIN [Concomitant]
     Active Substance: ERYTHROMYCIN
     Indication: Ill-defined disorder
     Dosage: 2 DOSAGE FORM, QID (TAKE TWO 4 TIMES/DAY)
     Route: 065
     Dates: start: 20240215, end: 20240222
  9. FEXOFENADINE [Concomitant]
     Active Substance: FEXOFENADINE HYDROCHLORIDE
     Indication: Ill-defined disorder
     Dosage: 1 DOSAGE FORM, QD (TAKE ONE DAILY)
     Route: 065
     Dates: start: 20240313
  10. HYDROCORTISONE [Concomitant]
     Active Substance: HYDROCORTISONE
     Indication: Ill-defined disorder
     Dosage: BID (APPLY TWICE A DAY TO HANDS AND LEGS
     Route: 065
     Dates: start: 20240202, end: 20240209
  11. LANSOPRAZOLE [Concomitant]
     Active Substance: LANSOPRAZOLE
     Indication: Ill-defined disorder
     Dosage: 1 DOSAGE FORM (TAKE ONE ONCE OR TWO DAILY . TAKE 30 MINS BEFOR)
     Route: 065
     Dates: start: 20230829
  12. LOPERAMIDE [Concomitant]
     Active Substance: LOPERAMIDE
     Indication: Ill-defined disorder
     Dosage: TAKE 1 OR 2 AS DIRECTED
     Route: 065
     Dates: start: 20230829
  13. NEBIVOLOL [Concomitant]
     Active Substance: NEBIVOLOL
     Indication: Ill-defined disorder
     Dosage: QD (TAKE HALF A TABLET A DAY)
     Route: 065
     Dates: start: 20231129
  14. PREDNISOLONE [Concomitant]
     Active Substance: PREDNISOLONE
     Indication: Ill-defined disorder
     Dosage: 180 MILLIGRAM, QD (TAKE SIX TABLETS (30MG) EVERY MORNING FOR 5 DAY)
     Route: 065
     Dates: start: 20240205, end: 20240210
  15. RAMIPRIL [Concomitant]
     Active Substance: RAMIPRIL
     Indication: Ill-defined disorder
     Dosage: 1 DOSAGE FORM, QD (TAKE ONE DAILY)
     Route: 065
     Dates: start: 20240201, end: 20240229

REACTIONS (1)
  - Skin reaction [Recovering/Resolving]

NARRATIVE: CASE EVENT DATE: 20240321
